FAERS Safety Report 9427793 (Version 1)
Quarter: 2013Q3

REPORT INFORMATION
  Report Type: Report from Study
  Country: US (occurrence: US)
  Receive Date: 20130730
  Receipt Date: 20130730
  Transmission Date: 20140515
  Serious: No
  Sender: FDA-Public Use
  Company Number: US-ABBOTT-12P-163-0978452-00

PATIENT
  Age: 63 Year
  Sex: Female
  Weight: 77.18 kg

DRUGS (9)
  1. NIASPAN (COATED) [Suspect]
     Dates: start: 201207, end: 20120909
  2. NIASPAN (COATED) [Suspect]
     Dates: start: 20120910
  3. NIASPAN (COATED) [Suspect]
  4. BABY ASA [Concomitant]
     Indication: PRODUCT USED FOR UNKNOWN INDICATION
     Dosage: BEFORE THE NIASPAN
  5. COUMADIN [Concomitant]
     Indication: PRODUCT USED FOR UNKNOWN INDICATION
  6. PEPCID [Concomitant]
     Indication: PRODUCT USED FOR UNKNOWN INDICATION
  7. PRILOSEC [Concomitant]
     Indication: PRODUCT USED FOR UNKNOWN INDICATION
  8. CLONIDINE [Concomitant]
     Indication: PRODUCT USED FOR UNKNOWN INDICATION
  9. LUNESTA [Concomitant]
     Indication: PRODUCT USED FOR UNKNOWN INDICATION

REACTIONS (5)
  - Paraesthesia [Not Recovered/Not Resolved]
  - Feeling hot [Unknown]
  - Erythema [Unknown]
  - Pruritus [Not Recovered/Not Resolved]
  - Erythema [Not Recovered/Not Resolved]
